FAERS Safety Report 18509300 (Version 6)
Quarter: 2021Q3

REPORT INFORMATION
  Report Type: Spontaneous
  Country: GB (occurrence: GB)
  Receive Date: 20201117
  Receipt Date: 20210915
  Transmission Date: 20211014
  Serious: Yes (Other)
  Sender: FDA-Public Use
  Company Number: GB-ROCHE-2714903

PATIENT
  Age: 29 Year
  Sex: Female

DRUGS (9)
  1. XOLAIR [Suspect]
     Active Substance: OMALIZUMAB
     Route: 058
  2. XOLAIR [Suspect]
     Active Substance: OMALIZUMAB
     Route: 058
  3. XOLAIR [Suspect]
     Active Substance: OMALIZUMAB
     Route: 058
  4. XOLAIR [Suspect]
     Active Substance: OMALIZUMAB
     Route: 058
  5. XOLAIR [Suspect]
     Active Substance: OMALIZUMAB
     Route: 058
     Dates: start: 20201028
  6. XOLAIR [Suspect]
     Active Substance: OMALIZUMAB
     Dosage: OFF LICENSE USE AS 3 WEEKLY
     Route: 058
  7. XOLAIR [Suspect]
     Active Substance: OMALIZUMAB
     Indication: URTICARIA
     Route: 058
  8. XOLAIR [Suspect]
     Active Substance: OMALIZUMAB
     Route: 058
  9. XOLAIR [Suspect]
     Active Substance: OMALIZUMAB
     Route: 058

REACTIONS (11)
  - Anxiety [Unknown]
  - Product administration error [Unknown]
  - Off label use [Unknown]
  - Hypoaesthesia [Unknown]
  - Rash [Recovered/Resolved]
  - Pyrexia [Unknown]
  - Lethargy [Unknown]
  - Fatigue [Unknown]
  - Angioedema [Recovered/Resolved]
  - Urticaria [Not Recovered/Not Resolved]
  - Rash pruritic [Recovered/Resolved]
